FAERS Safety Report 24559826 (Version 1)
Quarter: 2024Q4

REPORT INFORMATION
  Report Type: Report from Study
  Country: US (occurrence: US)
  Receive Date: 20241029
  Receipt Date: 20241029
  Transmission Date: 20250114
  Serious: Yes (Other)
  Sender: GRIFOLS
  Company Number: US-IGSA-BIG0031270

PATIENT
  Age: 34 Year
  Sex: Female

DRUGS (1)
  1. GAMUNEX-C [Suspect]
     Active Substance: HUMAN IMMUNOGLOBULIN G
     Indication: Polymyositis
     Dosage: 40 GRAM, Q.WK.
     Route: 042
     Dates: start: 20190527

REACTIONS (2)
  - Catheter site infection [Unknown]
  - Intentional dose omission [Unknown]

NARRATIVE: CASE EVENT DATE: 20241015
